FAERS Safety Report 12678031 (Version 3)
Quarter: 2018Q1

REPORT INFORMATION
  Report Type: Spontaneous
  Country: US (occurrence: US)
  Receive Date: 20160823
  Receipt Date: 20180104
  Transmission Date: 20180508
  Serious: Yes (Other)
  Sender: FDA-Public Use
  Company Number: US-SAOL THERAPEUTICS-2016SAO00448

PATIENT
  Age: 49 Year
  Sex: Male
  Weight: 95.24 kg

DRUGS (5)
  1. BACLOFEN. [Suspect]
     Active Substance: BACLOFEN
     Indication: MUSCLE SPASTICITY
  2. MORPHINE [Suspect]
     Active Substance: MORPHINE
  3. BACLOFEN. [Suspect]
     Active Substance: BACLOFEN
     Indication: MULTIPLE SCLEROSIS
     Dosage: 95.1 ?G, \DAY
     Dates: start: 20160811
  4. BACLOFEN. [Suspect]
     Active Substance: BACLOFEN
     Indication: MUSCLE SPASMS
  5. BACLOFEN. [Suspect]
     Active Substance: BACLOFEN
     Indication: MULTIPLE SCLEROSIS
     Dosage: 75.05 ?G, \DAY
     Route: 037
     Dates: start: 20160216

REACTIONS (8)
  - Dyspnoea [Unknown]
  - Asthenia [Unknown]
  - Off label use [Unknown]
  - Fall [Unknown]
  - Insomnia [Unknown]
  - Musculoskeletal chest pain [Unknown]
  - Lung disorder [Unknown]
  - Overdose [Unknown]

NARRATIVE: CASE EVENT DATE: 201602
